FAERS Safety Report 4697532-8 (Version None)
Quarter: 2005Q2

REPORT INFORMATION
  Report Type: 
  Country: None (occurrence: None)
  Receive Date: 20050622
  Receipt Date: 20050503
  Transmission Date: 20051028
  Serious: Yes (Hospitalization)
  Sender: FDA-Public Use
  Company Number: FR-MERCK-0505FRA00010

PATIENT
  Age: 68 Year
  Sex: Female

DRUGS (3)
  1. SINGULAIR [Suspect]
     Indication: ASTHMA
     Route: 048
     Dates: start: 20021201, end: 20030501
  2. BECLOMETHASONE DIPROPIONATE [Concomitant]
     Indication: ASTHMA
     Route: 055
  3. FORMOTEROL FUMARATE [Concomitant]
     Indication: ASTHMA
     Route: 055

REACTIONS (2)
  - ALLERGIC GRANULOMATOUS ANGIITIS [None]
  - SJOGREN'S SYNDROME [None]
